FAERS Safety Report 20507205 (Version 18)
Quarter: 2024Q1

REPORT INFORMATION
  Report Type: Spontaneous
  Country: PT (occurrence: PT)
  Receive Date: 20220223
  Receipt Date: 20240207
  Transmission Date: 20240409
  Serious: Yes (Death, Other)
  Sender: FDA-Public Use
  Company Number: PT-NOVARTISPH-NVSC2022PT031088

PATIENT

DRUGS (90)
  1. IMATINIB MESYLATE [Interacting]
     Active Substance: IMATINIB MESYLATE
     Indication: Product used for unknown indication
     Dosage: UNK
     Route: 065
  2. NILOTINIB [Interacting]
     Active Substance: NILOTINIB
     Indication: Product used for unknown indication
     Dosage: UNK
     Route: 065
  3. LETROZOLE [Interacting]
     Active Substance: LETROZOLE
     Indication: Product used for unknown indication
     Dosage: UNK
     Route: 065
  4. ZOLEDRONIC ACID [Interacting]
     Active Substance: ZOLEDRONIC ACID
     Indication: Product used for unknown indication
     Dosage: UNK
     Route: 065
  5. FLUVASTATIN [Interacting]
     Active Substance: FLUVASTATIN SODIUM
     Indication: Product used for unknown indication
     Dosage: UNK
     Route: 065
  6. BRINZOLAMIDE [Interacting]
     Active Substance: BRINZOLAMIDE
     Indication: Product used for unknown indication
     Dosage: 100 MG, UNKNOWN
     Route: 065
  7. BRINZOLAMIDE [Interacting]
     Active Substance: BRINZOLAMIDE
     Dosage: 120 MG, UNKNOWN
     Route: 065
  8. MYCOPHENOLIC ACID [Interacting]
     Active Substance: MYCOPHENOLIC ACID
     Indication: Product used for unknown indication
     Dosage: UNK
     Route: 065
  9. CELECOXIB [Interacting]
     Active Substance: CELECOXIB
     Indication: Product used for unknown indication
     Dosage: 100 MG, UNKNOWN
     Route: 065
  10. ALISKIREN [Interacting]
     Active Substance: ALISKIREN
     Indication: Product used for unknown indication
     Dosage: UNK
     Route: 065
  11. ACETAMINOPHEN [Interacting]
     Active Substance: ACETAMINOPHEN
     Indication: Product used for unknown indication
     Dosage: UNK
     Route: 065
  12. ADALIMUMAB [Interacting]
     Active Substance: ADALIMUMAB\ISOPROPYL ALCOHOL
     Indication: Product used for unknown indication
     Dosage: 35 G
     Route: 058
  13. ETANERCEPT [Interacting]
     Active Substance: ETANERCEPT
     Indication: Blood pressure abnormal
     Dosage: UNK
     Route: 065
  14. SIMVASTATIN [Interacting]
     Active Substance: SIMVASTATIN
     Indication: Product used for unknown indication
     Dosage: UNK
     Route: 048
  15. SIMVASTATIN [Interacting]
     Active Substance: SIMVASTATIN
     Dosage: 35 G
     Route: 065
  16. EZETIMIBE [Interacting]
     Active Substance: EZETIMIBE
     Indication: Product used for unknown indication
     Dosage: UNK
     Route: 048
  17. MIRTAZAPINE [Interacting]
     Active Substance: MIRTAZAPINE
     Indication: Product used for unknown indication
     Dosage: UNK
     Route: 048
  18. ESCITALOPRAM OXALATE [Interacting]
     Active Substance: ESCITALOPRAM OXALATE
     Indication: Product used for unknown indication
     Dosage: 5 MG, UNKNOWN
     Route: 048
  19. DONEPEZIL HYDROCHLORIDE [Interacting]
     Active Substance: DONEPEZIL HYDROCHLORIDE
     Indication: Product used for unknown indication
     Dosage: 5 MG, UNKNOWN
     Route: 048
  20. PRAVASTATIN SODIUM [Interacting]
     Active Substance: PRAVASTATIN SODIUM
     Indication: Product used for unknown indication
     Dosage: UNK
     Route: 065
  21. ESOMEPRAZOLE [Interacting]
     Active Substance: ESOMEPRAZOLE
     Indication: Product used for unknown indication
     Dosage: UNK
     Route: 065
  22. TELMISARTAN [Interacting]
     Active Substance: TELMISARTAN
     Indication: Product used for unknown indication
     Dosage: UNK
     Route: 065
  23. BISOPROLOL FUMARATE [Interacting]
     Active Substance: BISOPROLOL FUMARATE
     Indication: Product used for unknown indication
     Dosage: 2.5 MG
     Route: 065
  24. NITROGLYCERIN [Interacting]
     Active Substance: NITROGLYCERIN
     Indication: Product used for unknown indication
     Dosage: UNK
     Route: 065
  25. PREGABALIN [Interacting]
     Active Substance: PREGABALIN
     Indication: Product used for unknown indication
     Dosage: 50 MG
     Route: 065
  26. PREGABALIN [Interacting]
     Active Substance: PREGABALIN
     Dosage: 120 MG
     Route: 065
  27. SERTRALINE HYDROCHLORIDE [Interacting]
     Active Substance: SERTRALINE HYDROCHLORIDE
     Indication: Product used for unknown indication
     Dosage: UNK
     Route: 065
  28. VENLAFAXINE HYDROCHLORIDE [Interacting]
     Active Substance: VENLAFAXINE HYDROCHLORIDE
     Indication: Product used for unknown indication
     Dosage: 100 MG, UNKNOWN
     Route: 065
  29. TAMSULOSIN HYDROCHLORIDE [Interacting]
     Active Substance: TAMSULOSIN HYDROCHLORIDE
     Indication: Product used for unknown indication
     Dosage: UNK
     Route: 062
  30. XYZAL [Interacting]
     Active Substance: LEVOCETIRIZINE DIHYDROCHLORIDE
     Indication: Product used for unknown indication
     Dosage: 5 MG, UNKNOWN
     Route: 065
  31. CODEINE PHOSPHATE [Interacting]
     Active Substance: CODEINE PHOSPHATE
     Indication: Product used for unknown indication
     Dosage: UNK
     Route: 065
  32. SODIUM PICOSULFATE [Interacting]
     Active Substance: SODIUM PICOSULFATE
     Indication: Product used for unknown indication
     Dosage: 35 G, UNKNOWN
     Route: 062
  33. SODIUM PICOSULFATE [Interacting]
     Active Substance: SODIUM PICOSULFATE
     Dosage: 75 G, UNKNOWN
     Route: 062
  34. HUMAN IMMUNOGLOBULIN G [Interacting]
     Active Substance: HUMAN IMMUNOGLOBULIN G
     Indication: Product used for unknown indication
     Dosage: 50 MILLIGRAM PER CUBIC METRE
     Route: 065
  35. SOFOSBUVIR [Interacting]
     Active Substance: SOFOSBUVIR
     Indication: Product used for unknown indication
     Dosage: UNK
     Route: 065
  36. EXEMESTANE [Interacting]
     Active Substance: EXEMESTANE
     Indication: Product used for unknown indication
     Dosage: 35 G, UNKNOWN
     Route: 065
  37. PENTOXIFYLLINE [Interacting]
     Active Substance: PENTOXIFYLLINE
     Indication: Product used for unknown indication
     Dosage: 100 MG, UNKNOWN
     Route: 065
  38. PENTOXIFYLLINE [Interacting]
     Active Substance: PENTOXIFYLLINE
     Dosage: 400 MG, UNKNOWN
     Route: 065
  39. PITAVASTATIN [Interacting]
     Active Substance: PITAVASTATIN
     Indication: Product used for unknown indication
     Dosage: UNK
     Route: 065
  40. AGOMELATINE [Interacting]
     Active Substance: AGOMELATINE
     Indication: Product used for unknown indication
     Dosage: UNK
     Route: 065
  41. GINKGO [Interacting]
     Active Substance: GINKGO
     Indication: Product used for unknown indication
     Dosage: 120 MG, UNKNOWN
     Route: 065
  42. GINKGO [Interacting]
     Active Substance: GINKGO
     Dosage: 2.5 MG
     Route: 065
  43. CHOLECALCIFEROL [Interacting]
     Active Substance: CHOLECALCIFEROL
     Indication: Product used for unknown indication
     Dosage: 22400 IU
     Route: 065
  44. CHOLECALCIFEROL [Interacting]
     Active Substance: CHOLECALCIFEROL
     Dosage: 5 MG
     Route: 065
  45. CHOLECALCIFEROL [Interacting]
     Active Substance: CHOLECALCIFEROL
     Dosage: 50 MG
     Route: 065
  46. VORTIOXETINE [Interacting]
     Active Substance: VORTIOXETINE
     Indication: Product used for unknown indication
     Dosage: UNK
     Route: 065
  47. PROPRANOLOL [Interacting]
     Active Substance: PROPRANOLOL HYDROCHLORIDE
     Indication: Product used for unknown indication
     Dosage: UNK
     Route: 065
  48. HYDROMORPHONE HYDROCHLORIDE [Interacting]
     Active Substance: HYDROMORPHONE HYDROCHLORIDE
     Indication: Product used for unknown indication
     Dosage: UNK
     Route: 048
  49. FENOFIBRATE [Interacting]
     Active Substance: FENOFIBRATE
     Indication: Product used for unknown indication
     Dosage: 100 MG, UNKNOWN
     Route: 065
  50. ENOXAPARIN SODIUM [Interacting]
     Active Substance: ENOXAPARIN SODIUM
     Indication: Product used for unknown indication
     Dosage: UNK
     Route: 065
  51. HYDROCHLOROTHIAZIDE [Interacting]
     Active Substance: HYDROCHLOROTHIAZIDE
     Indication: Product used for unknown indication
     Dosage: UNK
     Route: 065
  52. ACECLOFENAC [Interacting]
     Active Substance: ACECLOFENAC
     Indication: Product used for unknown indication
     Dosage: 100 MG, UNKNOWN
     Route: 065
  53. ANASTROZOLE [Interacting]
     Active Substance: ANASTROZOLE
     Indication: Product used for unknown indication
     Dosage: UNK
     Route: 065
  54. GLUCOSAMINE [Interacting]
     Active Substance: GLUCOSAMINE
     Indication: Product used for unknown indication
     Dosage: 1500 MG, UNKNOWN
     Route: 065
  55. VERAPAMIL HYDROCHLORIDE [Interacting]
     Active Substance: VERAPAMIL HYDROCHLORIDE
     Indication: Product used for unknown indication
     Dosage: 120 MG
     Route: 065
  56. ESCHERICHIA COLI [Interacting]
     Active Substance: ESCHERICHIA COLI
     Indication: Product used for unknown indication
     Dosage: UNK
     Route: 065
  57. DOCETAXEL [Interacting]
     Active Substance: DOCETAXEL\DOCETAXEL ANHYDROUS
     Indication: Product used for unknown indication
     Dosage: 100 MG, UNKNOWN
     Route: 065
  58. DILTIAZEM HYDROCHLORIDE [Interacting]
     Active Substance: DILTIAZEM HYDROCHLORIDE
     Indication: Product used for unknown indication
     Dosage: 120 MG
     Route: 065
  59. RIBAVIRIN [Interacting]
     Active Substance: RIBAVIRIN
     Indication: Product used for unknown indication
     Dosage: 5 MG, UNKNOWN
     Route: 065
  60. DUTASTERIDE [Interacting]
     Active Substance: DUTASTERIDE
     Indication: Product used for unknown indication
     Dosage: 100 MG
     Route: 065
  61. ALENDRONIC ACID [Interacting]
     Active Substance: ALENDRONIC ACID
     Indication: Product used for unknown indication
     Dosage: UNK
     Route: 048
  62. MOTILIUM [Interacting]
     Active Substance: DOMPERIDONE
     Indication: Product used for unknown indication
     Dosage: UNK
     Route: 065
  63. CILAZAPRIL ANHYDROUS [Interacting]
     Active Substance: CILAZAPRIL ANHYDROUS
     Indication: Product used for unknown indication
     Dosage: UNK
     Route: 065
  64. NORFLOXACIN [Interacting]
     Active Substance: NORFLOXACIN
     Indication: Product used for unknown indication
     Dosage: UNK
     Route: 065
  65. LEDIPASVIR [Interacting]
     Active Substance: LEDIPASVIR
     Indication: Product used for unknown indication
     Dosage: UNK
     Route: 065
  66. ASPIRIN [Interacting]
     Active Substance: ASPIRIN
     Indication: Product used for unknown indication
     Dosage: 5 MG, UNKNOWN
     Route: 065
  67. ASPIRIN [Interacting]
     Active Substance: ASPIRIN
     Dosage: 100 MG, UNKNOWN
     Route: 065
  68. TRAMADOL HYDROCHLORIDE [Interacting]
     Active Substance: TRAMADOL HYDROCHLORIDE
     Indication: Product used for unknown indication
     Dosage: 100 MG, UNKNOWN
     Route: 062
  69. BUPRENORPHINE [Interacting]
     Active Substance: BUPRENORPHINE
     Indication: Product used for unknown indication
     Dosage: 35 G, QH
     Route: 062
  70. BUPRENORPHINE [Interacting]
     Active Substance: BUPRENORPHINE
     Dosage: 35 G
     Route: 062
  71. FLUOXETINE HYDROCHLORIDE [Interacting]
     Active Substance: FLUOXETINE HYDROCHLORIDE
     Indication: Product used for unknown indication
     Dosage: UNK
     Route: 065
  72. TOCILIZUMAB [Interacting]
     Active Substance: TOCILIZUMAB
     Indication: Product used for unknown indication
     Dosage: UNK
     Route: 065
  73. ALENDRONATE SODIUM [Interacting]
     Active Substance: ALENDRONATE SODIUM
     Indication: Product used for unknown indication
     Dosage: UNK
     Route: 048
  74. POTASSIUM IODIDE [Interacting]
     Active Substance: POTASSIUM IODIDE
     Indication: Product used for unknown indication
     Dosage: UNK (IODHUMAN)
     Route: 065
  75. PENTAZOCINE [Interacting]
     Active Substance: PENTAZOCINE
     Indication: Product used for unknown indication
     Dosage: 100 MG, UNKNOWN
     Route: 065
  76. CODEINE SULFATE [Interacting]
     Active Substance: CODEINE SULFATE
     Indication: Product used for unknown indication
     Dosage: UNK
     Route: 065
  77. INDOMETHACIN SODIUM [Interacting]
     Active Substance: INDOMETHACIN SODIUM
     Indication: Product used for unknown indication
     Dosage: UNK
     Route: 065
  78. IODINE [Interacting]
     Active Substance: IODINE
     Indication: Product used for unknown indication
     Dosage: UNK
     Route: 065
  79. HUMAN RABIES VIRUS IMMUNE GLOBULIN [Interacting]
     Active Substance: HUMAN RABIES VIRUS IMMUNE GLOBULIN
     Indication: Product used for unknown indication
     Dosage: UNK
     Route: 065
  80. ATORVASTATIN CALCIUM [Interacting]
     Active Substance: ATORVASTATIN CALCIUM
     Indication: Product used for unknown indication
     Dosage: 100 MG, UNKNOWN
     Route: 065
  81. ATORVASTATIN CALCIUM [Interacting]
     Active Substance: ATORVASTATIN CALCIUM
     Dosage: UNK
     Route: 065
  82. MYCOPHENOLATE MOFETIL [Interacting]
     Active Substance: MYCOPHENOLATE MOFETIL
     Indication: Product used for unknown indication
     Dosage: UNK
     Route: 065
  83. IBANDRONIC ACID [Interacting]
     Active Substance: IBANDRONIC ACID
     Indication: Product used for unknown indication
     Dosage: UNK
     Route: 065
  84. IBANDRONIC ACID [Interacting]
     Active Substance: IBANDRONIC ACID
     Indication: Product used for unknown indication
  85. NIMESULIDE [Interacting]
     Active Substance: NIMESULIDE
     Indication: Product used for unknown indication
     Dosage: UNK
     Route: 065
  86. CODEINE [Interacting]
     Active Substance: CODEINE
     Indication: Product used for unknown indication
     Dosage: UNK
     Route: 065
  87. NITROGLYCERIN [Interacting]
     Active Substance: NITROGLYCERIN
     Indication: Product used for unknown indication
     Dosage: UNK
     Route: 065
  88. NAUZELIN [Interacting]
     Active Substance: DOMPERIDONE
     Indication: Product used for unknown indication
     Dosage: UNK
     Route: 065
  89. HUMAN IMMUNOGLOBULIN G [Suspect]
     Active Substance: HUMAN IMMUNOGLOBULIN G
     Indication: Product used for unknown indication
     Dosage: 50 MG
     Route: 065
  90. HUMAN IMMUNOGLOBULIN G [Suspect]
     Active Substance: HUMAN IMMUNOGLOBULIN G
     Dosage: 50 MG/M3
     Route: 065

REACTIONS (45)
  - Haemorrhagic stroke [Fatal]
  - Altered state of consciousness [Fatal]
  - Cardio-respiratory arrest [Fatal]
  - Headache [Fatal]
  - Sepsis [Fatal]
  - Ascites [Fatal]
  - Ocular discomfort [Fatal]
  - Haematemesis [Fatal]
  - Asthenia [Fatal]
  - Generalised oedema [Fatal]
  - Myalgia [Fatal]
  - Head discomfort [Fatal]
  - Presyncope [Fatal]
  - Photophobia [Fatal]
  - Malaise [Fatal]
  - Urinary tract disorder [Fatal]
  - Diplopia [Fatal]
  - Syncope [Fatal]
  - Abdominal pain upper [Fatal]
  - Coma [Fatal]
  - Tinnitus [Fatal]
  - Eye pain [Fatal]
  - Fall [Fatal]
  - Amaurosis fugax [Fatal]
  - Haematuria [Fatal]
  - Vomiting [Fatal]
  - Somnolence [Fatal]
  - Abdominal pain [Fatal]
  - Fatigue [Fatal]
  - Cough [Fatal]
  - Insomnia [Fatal]
  - Vision blurred [Fatal]
  - Arthralgia [Fatal]
  - Nausea [Fatal]
  - Pruritus [Fatal]
  - Diarrhoea [Fatal]
  - Blood pressure increased [Fatal]
  - Dizziness [Fatal]
  - Tachycardia [Fatal]
  - Pyrexia [Fatal]
  - Blindness [Fatal]
  - Decreased appetite [Fatal]
  - Dyspnoea [Fatal]
  - Chills [Fatal]
  - Drug interaction [Fatal]
